FAERS Safety Report 4971108-7 (Version None)
Quarter: 2006Q1

REPORT INFORMATION
  Report Type: 
  Country: None (occurrence: None)
  Receive Date: 20060228
  Receipt Date: 20050429
  Transmission Date: 20060701
  Serious: Yes (Other)
  Sender: FDA-Public Use
  Company Number: 002#1#2005-00148

PATIENT
  Age: 62 Year
  Sex: Male

DRUGS (10)
  1. REGLAN [Suspect]
     Indication: ABDOMINAL PAIN UPPER
     Dosage: ORAL
     Route: 048
     Dates: start: 20040701
  2. SERTRALINE [Suspect]
     Indication: DEPRESSION
     Dosage: 100MG,1 IN 1 D,ORAL
     Route: 048
     Dates: start: 20040701, end: 20041201
  3. HYOSCYAMINE-EXTENDED-RELEASE [Concomitant]
  4. ESOMEPRAZOLE [Concomitant]
  5. METOPROLOL [Concomitant]
  6. FAMOTIDINE [Concomitant]
  7. ACETYLSALICYLIC ACID SRT [Concomitant]
  8. ATORVASTATIN CALCIUM [Concomitant]
  9. SIMETHICONE [Concomitant]
  10. DOCUSATE [Concomitant]

REACTIONS (5)
  - DEPRESSION [None]
  - SUICIDAL IDEATION [None]
  - TARDIVE DYSKINESIA [None]
  - TREMOR [None]
  - TRISMUS [None]
